FAERS Safety Report 9725172 (Version 1)
Quarter: 2013Q4

REPORT INFORMATION
  Report Type: Spontaneous
  Country: US (occurrence: US)
  Receive Date: 20131203
  Receipt Date: 20131203
  Transmission Date: 20140711
  Serious: Yes (Hospitalization)
  Sender: FDA-Public Use
  Company Number: US-ROCHE-1308076

PATIENT
  Sex: Female

DRUGS (13)
  1. RITUXAN [Suspect]
     Indication: RHEUMATOID ARTHRITIS
     Dosage: MOST RECENT INFUSION WAS ON JUN 2013.
     Route: 042
  2. LEFLUNOMIDE [Concomitant]
     Route: 048
  3. DETROL LA [Concomitant]
     Route: 048
  4. VITAMIN D3 [Concomitant]
  5. WARFARIN [Concomitant]
     Route: 048
  6. CYMBALTA [Concomitant]
     Route: 048
  7. GABAPENTIN [Concomitant]
     Route: 048
  8. NORTRIPTYLINE [Concomitant]
     Route: 048
  9. HYDROCODONE/ACETAMINOPHEN [Concomitant]
     Dosage: 5/325 MG AS NEEDED
     Route: 065
  10. MIRALAX [Concomitant]
  11. FOLIC ACID [Concomitant]
  12. LISINOPRIL [Concomitant]
     Route: 048
  13. OMEPRAZOLE [Concomitant]
     Route: 048

REACTIONS (7)
  - Herpes zoster [Unknown]
  - Encephalopathy [Unknown]
  - Lethargy [Unknown]
  - Confusional state [Unknown]
  - Aphasia [Unknown]
  - Pyrexia [Unknown]
  - Renal impairment [Unknown]
